FAERS Safety Report 4556001-6 (Version None)
Quarter: 2005Q1

REPORT INFORMATION
  Report Type: 
  Country: None (occurrence: None)
  Receive Date: 20050110
  Receipt Date: 20040616
  Transmission Date: 20050727
  Serious: Yes (Death, Hospitalization)
  Sender: FDA-Public Use
  Company Number: US006908

PATIENT
  Age: 59 Year
  Sex: Female
  Weight: 49 kg

DRUGS (6)
  1. ANAKINRA [Suspect]
     Indication: RHEUMATOID ARTHRITIS
     Dosage: 100 MG, DAILY, SC
     Route: 058
     Dates: start: 20010625, end: 20010819
  2. METHOTREXATE [Concomitant]
  3. ESTROGENS CONJUGATED [Concomitant]
  4. CELECOXIB [Concomitant]
  5. PAROXETINE HYDROCHLORIDE [Concomitant]
  6. OMEPRAZOLE [Concomitant]

REACTIONS (2)
  - ACUTE RESPIRATORY DISTRESS SYNDROME [None]
  - PNEUMONIA [None]
